FAERS Safety Report 9538677 (Version 3)
Quarter: 2013Q4

REPORT INFORMATION
  Report Type: Report from Study
  Country: IN (occurrence: IN)
  Receive Date: 20130920
  Receipt Date: 20131030
  Transmission Date: 20140711
  Serious: Yes (Hospitalization)
  Sender: FDA-Public Use
  Company Number: PHHY2013IN103350

PATIENT
  Age: 34 Year
  Sex: Male

DRUGS (21)
  1. SIMULECT [Suspect]
     Indication: RENAL TRANSPLANT
     Dosage: 20 MG, UNK
     Dates: start: 20130621
  2. SIMULECT [Suspect]
     Dosage: 20 MG, UNK
  3. TACROLIMUS [Suspect]
     Indication: IMMUNOSUPPRESSION
     Dosage: 2 DF, BID (AT 9 AM AND 9 PM)
  4. MYCOPHENOLATE MOFETIL [Concomitant]
     Indication: IMMUNOSUPPRESSION
     Dosage: UNK UKN, UNK
  5. METHYLPREDNISOLONE [Concomitant]
     Indication: IMMUNOSUPPRESSION
     Dosage: UNK UKN, UNK
  6. MYFORTIC [Concomitant]
     Dosage: 2 DF, BID (AT 8 AM AND AT 8 PM)
  7. OMNACORTIL//PREDNISOLONE [Concomitant]
     Dosage: UNK UKN, UNK
  8. ISONIAZID [Concomitant]
     Dosage: 1 DF, QD
  9. PYRAZINAMIDE [Concomitant]
     Dosage: 1 DF, BID
  10. ETHAMBUTOL [Concomitant]
     Dosage: 1 DF, QD
  11. LEVOFLOX [Concomitant]
     Dosage: 1 DF, QD
  12. MEROPENEM [Concomitant]
     Dosage: 1 G, BID
     Route: 042
  13. INAPURE [Concomitant]
     Dosage: 0.5 DF, BID
  14. LANOXIN [Concomitant]
     Dosage: 0.5 DF, QD (5/7)
  15. DYTOR [Concomitant]
     Dosage: 1 DF, QD
  16. PAN-D [Concomitant]
     Dosage: 1 DF, QD
  17. NEFITAZ [Concomitant]
     Dosage: 1 DF, QD
  18. THROMBOPHOB                        /00277201/ [Concomitant]
     Dosage: UNK UKN, UNK
  19. CEFTUM [Concomitant]
     Dosage: 1 DF, BID
  20. SOLUMEDROL [Concomitant]
     Dosage: 500 MG, UNK
  21. ALBUREL [Concomitant]
     Dosage: 20% PER 100 ML

REACTIONS (11)
  - Ascites [Unknown]
  - Renal tubular necrosis [Unknown]
  - Anuria [Unknown]
  - Peritonitis bacterial [Unknown]
  - Abdominal distension [Unknown]
  - Kidney transplant rejection [Unknown]
  - Polyuria [Unknown]
  - Renal haemorrhage [Unknown]
  - Renal impairment [Unknown]
  - Urinary tract inflammation [Unknown]
  - Urinary casts [Unknown]
